FAERS Safety Report 8083478-4 (Version None)
Quarter: 2012Q1

REPORT INFORMATION
  Report Type: 
  Country: None (occurrence: None)
  Receive Date: 20120127
  Receipt Date: 20110304
  Transmission Date: 20120608
  Serious: No
  Sender: FDA-Public Use
  Company Number: US-ABBOTT-11P-163-0700886-00

PATIENT
  Sex: Male
  Weight: 81.72 kg

DRUGS (3)
  1. HUMIRA [Suspect]
     Indication: CROHN'S DISEASE
     Dosage: LOADING DOSE
     Route: 058
     Dates: start: 20101227, end: 20101227
  2. HUMIRA [Suspect]
     Route: 058
     Dates: start: 20110110, end: 20110110
  3. HUMIRA [Suspect]
     Route: 058
     Dates: start: 20110124

REACTIONS (5)
  - HYPERHIDROSIS [None]
  - CHILLS [None]
  - NASAL CONGESTION [None]
  - DRUG INEFFECTIVE [None]
  - VIRAL INFECTION [None]
